FAERS Safety Report 15588026 (Version 7)
Quarter: 2019Q2

REPORT INFORMATION
  Report Type: Report from Study
  Country: US (occurrence: US)
  Receive Date: 20181105
  Receipt Date: 20190412
  Transmission Date: 20190711
  Serious: Yes (Hospitalization)
  Sender: FDA-Public Use
  Company Number: US-ACTELION-A-NJ2018-179839

PATIENT
  Age: 42 Year
  Sex: Male
  Weight: 79.82 kg

DRUGS (6)
  1. PREDNISONE. [Concomitant]
     Active Substance: PREDNISONE
     Dosage: UNK, QD
  2. VELETRI [Suspect]
     Active Substance: EPOPROSTENOL
     Indication: PULMONARY ARTERIAL HYPERTENSION
     Dosage: 44 NG/KG, PER MIN
     Route: 042
     Dates: start: 20150212
  3. METOLAZONE. [Concomitant]
     Active Substance: METOLAZONE
  4. MIDODRINE [Concomitant]
     Active Substance: MIDODRINE
  5. FUROSEMIDE. [Concomitant]
     Active Substance: FUROSEMIDE
  6. AMIODARONE [Concomitant]
     Active Substance: AMIODARONE

REACTIONS (16)
  - Device related sepsis [Recovered/Resolved]
  - Pyrexia [Recovered/Resolved]
  - Fatigue [Recovered/Resolved]
  - Staphylococcus test positive [Recovered/Resolved]
  - Catheter management [Recovered/Resolved]
  - Immunosuppression [Unknown]
  - Blood culture positive [Recovered/Resolved]
  - Hypotension [Recovered/Resolved]
  - Device dislocation [Unknown]
  - Hospitalisation [Unknown]
  - Fluid retention [Unknown]
  - Oedema [Unknown]
  - Device occlusion [Unknown]
  - Leukocytosis [Recovered/Resolved]
  - Vascular device infection [Unknown]
  - Asthenia [Recovered/Resolved]

NARRATIVE: CASE EVENT DATE: 20181028
